FAERS Safety Report 20977831 (Version 2)
Quarter: 2025Q1

REPORT INFORMATION
  Report Type: Spontaneous
  Country: US (occurrence: US)
  Receive Date: 20220618
  Receipt Date: 20250126
  Transmission Date: 20250408
  Serious: No
  Sender: BRISTOL-MYERS SQUIBB COMPANY
  Company Number: US-BRISTOL-MYERS SQUIBB COMPANY-2022-052895

PATIENT
  Age: 77 Year
  Sex: Male

DRUGS (1)
  1. REVLIMID [Suspect]
     Active Substance: LENALIDOMIDE
     Indication: Plasma cell myeloma
     Route: 048
     Dates: start: 20210128

REACTIONS (6)
  - Gait disturbance [Unknown]
  - Somnolence [Unknown]
  - Disturbance in attention [Unknown]
  - Heart rate decreased [Unknown]
  - Upper-airway cough syndrome [Unknown]
  - Cough [Unknown]
